FAERS Safety Report 5120921-4 (Version None)
Quarter: 2006Q4

REPORT INFORMATION
  Report Type: 
  Country: None (occurrence: None)
  Receive Date: 20061005
  Receipt Date: 20060915
  Transmission Date: 20070319
  Serious: Yes (Hospitalization)
  Sender: FDA-Public Use
  Company Number: US-ROCHE-463702

PATIENT
  Age: 80 Year
  Sex: Female
  Weight: 64.4 kg

DRUGS (12)
  1. BONIVA [Suspect]
     Indication: OSTEOPOROSIS
     Dosage: STRENGTH AND FORMULATION 3MG/3 ML SYRINGE
     Route: 065
     Dates: start: 20060830, end: 20060830
  2. PLAVIX [Concomitant]
     Indication: MYOCARDIAL INFARCTION
     Route: 048
     Dates: start: 20041115
  3. LIPITOR [Concomitant]
     Route: 048
     Dates: start: 20050615
  4. ASPIRIN [Concomitant]
     Indication: MYOCARDIAL INFARCTION
     Route: 048
     Dates: start: 20041115
  5. TOPROL-XL [Concomitant]
  6. BENICAR [Concomitant]
     Dates: start: 20041115
  7. EVISTA [Concomitant]
     Indication: OSTEOPOROSIS
  8. NEXIUM [Concomitant]
     Indication: ULCER
  9. VITAMIN D [Concomitant]
     Indication: OSTEOPOROSIS
     Dates: start: 20060615
  10. MULTIVITAMIN NOS [Concomitant]
  11. VITAMIN B5 [Concomitant]
  12. ESTER C [Concomitant]

REACTIONS (6)
  - BURNING SENSATION [None]
  - CHEST PAIN [None]
  - DRUG ADMINISTRATION ERROR [None]
  - OEDEMA PERIPHERAL [None]
  - SKIN DISCOLOURATION [None]
  - UPPER EXTREMITY MASS [None]
